FAERS Safety Report 5954677-X (Version None)
Quarter: 2008Q4

REPORT INFORMATION
  Report Type: 
  Country: None (occurrence: None)
  Receive Date: 20081117
  Receipt Date: 20081105
  Transmission Date: 20090506
  Serious: Yes (Other)
  Sender: FDA-Public Use
  Company Number: PHHY2008JP26613

PATIENT
  Age: 76 Year
  Sex: Male

DRUGS (2)
  1. GLEEVEC [Suspect]
     Indication: CHRONIC MYELOID LEUKAEMIA
     Dosage: UNK
     Route: 048
     Dates: end: 20070801
  2. GLEEVEC [Suspect]
     Dosage: UNK
     Dates: start: 20071101

REACTIONS (5)
  - DRUG ERUPTION [None]
  - ERYTHEMA [None]
  - HYPERKERATOSIS PALMARIS AND PLANTARIS [None]
  - LYMPHOCYTIC INFILTRATION [None]
  - SYSTEMIC LUPUS ERYTHEMATOSUS [None]
